FAERS Safety Report 8556259-2 (Version None)
Quarter: 2012Q3

REPORT INFORMATION
  Report Type: 
  Country: None (occurrence: None)
  Receive Date: 20120801
  Receipt Date: 20120728
  Transmission Date: 20120928
  Serious: No
  Sender: FDA-Public Use
  Company Number: US-PFIZER INC-2012182974

PATIENT
  Sex: Female
  Weight: 57.143 kg

DRUGS (4)
  1. BYSTOLIC [Concomitant]
     Indication: HYPERTENSION
     Dosage: UNK
  2. VASOTEC [Concomitant]
     Indication: HYPERTENSION
     Dosage: UNK
  3. PREMARIN [Suspect]
     Indication: VULVOVAGINAL PAIN
     Dosage: UNK, 2X/WEEK
     Route: 067
     Dates: start: 20120726, end: 20120726
  4. NORVASC [Concomitant]
     Indication: HYPERTENSION
     Dosage: UNK

REACTIONS (2)
  - APPLICATION SITE PAIN [None]
  - HYPERSENSITIVITY [None]
